FAERS Safety Report 7653732-6 (Version None)
Quarter: 2011Q3

REPORT INFORMATION
  Report Type: 
  Country: None (occurrence: None)
  Receive Date: 20110803
  Receipt Date: 20110729
  Transmission Date: 20111222
  Serious: Yes (Death)
  Sender: FDA-Public Use
  Company Number: US-GLAXOSMITHKLINE-A0928218A

PATIENT
  Age: 48 Year
  Sex: Female

DRUGS (1)
  1. AVANDIA [Suspect]
     Indication: DIABETES MELLITUS
     Dosage: 2MG PER DAY
     Route: 048
     Dates: end: 20060713

REACTIONS (6)
  - MYOCARDIAL INFARCTION [None]
  - LOCALISED INFECTION [None]
  - WEIGHT INCREASED [None]
  - KIDNEY INFECTION [None]
  - DEATH [None]
  - HEPATIC INFECTION [None]
